FAERS Safety Report 26036803 (Version 1)
Quarter: 2025Q4

REPORT INFORMATION
  Report Type: Spontaneous
  Country: US (occurrence: US)
  Receive Date: 20251112
  Receipt Date: 20251112
  Transmission Date: 20260118
  Serious: No
  Sender: PARATEK PHARMACEUTICALS
  Company Number: US-PARATEK PHARMACEUTICALS, INC.-2024PTK01147

PATIENT
  Sex: Male

DRUGS (2)
  1. OMADACYCLINE [Suspect]
     Active Substance: OMADACYCLINE
     Indication: Mycobacterium chelonae infection
     Dosage: UNK
  2. CLARITHROMYCIN [Suspect]
     Active Substance: CLARITHROMYCIN
     Indication: Mycobacterium chelonae infection
     Dosage: UNK

REACTIONS (2)
  - Mycobacterium chelonae infection [Not Recovered/Not Resolved]
  - Drug ineffective for unapproved indication [Not Recovered/Not Resolved]
